FAERS Safety Report 8854524 (Version 2)
Quarter: 2012Q4

REPORT INFORMATION
  Report Type: Report from Study
  Country: US (occurrence: US)
  Receive Date: 20121023
  Receipt Date: 20121128
  Transmission Date: 20130627
  Serious: Yes (Hospitalization)
  Sender: FDA-Public Use
  Company Number: US-CELGENEUS-163-20785-12101796

PATIENT
  Age: 81 Year
  Sex: Female

DRUGS (6)
  1. THALIDOMIDE [Suspect]
     Indication: ALZHEIMER^S DISEASE
     Dosage: 200 Milligram
     Route: 048
     Dates: start: 20120917, end: 20121007
  2. GLIPIZIDE [Concomitant]
     Indication: DRUG USE FOR UNKNOWN INDICATION
     Dosage: 5 Milligram
     Route: 048
     Dates: start: 2011
  3. CALTRATE WITH VITAMIN D [Concomitant]
     Indication: DRUG USE FOR UNKNOWN INDICATION
     Dosage: 1500 Milligram
     Route: 048
  4. EXELON [Concomitant]
     Indication: MEMORY DISTURBANCE
     Dosage: 9.5 Milligram
     Route: 059
     Dates: start: 2010
  5. NAMENDA [Concomitant]
     Indication: MEMORY DISTURBANCE
     Dosage: 20 Milligram
     Route: 048
     Dates: start: 2010
  6. ZOCOR [Concomitant]
     Indication: DRUG USE FOR UNKNOWN INDICATION
     Dosage: 80 Milligram
     Route: 048

REACTIONS (2)
  - Proctitis [Recovered/Resolved]
  - Escherichia urinary tract infection [Recovered/Resolved]
